FAERS Safety Report 24207408 (Version 1)
Quarter: 2024Q3

REPORT INFORMATION
  Report Type: Spontaneous
  Country: BR (occurrence: BR)
  Receive Date: 20240813
  Receipt Date: 20240813
  Transmission Date: 20241017
  Serious: Yes (Other)
  Sender: TAKEDA
  Company Number: BR-TAKEDA-2024TUS080444

PATIENT
  Sex: Female
  Weight: 37 kg

DRUGS (5)
  1. MESALAMINE [Suspect]
     Active Substance: MESALAMINE
     Indication: Diverticulitis
     Dosage: UNK UNK, QD
     Route: 065
  2. BENICAR [Concomitant]
     Active Substance: OLMESARTAN MEDOXOMIL
     Indication: Blood pressure abnormal
     Dosage: UNK
  3. BROMAZEPAM [Concomitant]
     Active Substance: BROMAZEPAM
     Indication: Sleep disorder
     Dosage: UNK
  4. Pepsamar [Concomitant]
     Dosage: UNK
  5. OMEPRAZOLE [Concomitant]
     Active Substance: OMEPRAZOLE
     Indication: Abdominal discomfort
     Dosage: UNK

REACTIONS (11)
  - Nasal cavity mass [Unknown]
  - Product colour issue [Unknown]
  - Drug ineffective [Unknown]
  - Product formulation issue [Unknown]
  - Poor quality product administered [Unknown]
  - Body height decreased [Unknown]
  - Blood cholesterol abnormal [Unknown]
  - Lactose intolerance [Unknown]
  - Gastrointestinal tract irritation [Unknown]
  - Gastritis [Unknown]
  - Abdominal pain [Unknown]
